FAERS Safety Report 18360650 (Version 1)
Quarter: 2020Q4

REPORT INFORMATION
  Report Type: Spontaneous
  Country: US (occurrence: US)
  Receive Date: 20201008
  Receipt Date: 20201008
  Transmission Date: 20210114
  Serious: No
  Sender: FDA-Public Use
  Company Number: US-ROMARKLABS-2019-US-000213

PATIENT
  Age: 23 Year
  Sex: Female

DRUGS (1)
  1. ALINIA [Suspect]
     Active Substance: NITAZOXANIDE
     Indication: LYME DISEASE
     Dosage: TAKE 1 TABLET BY MOUTH TWICE DAILY
     Route: 048

REACTIONS (1)
  - Fatigue [Not Recovered/Not Resolved]

NARRATIVE: CASE EVENT DATE: 20191007
